FAERS Safety Report 15898515 (Version 1)
Quarter: 2019Q1

REPORT INFORMATION
  Report Type: Spontaneous
  Country: FR (occurrence: FR)
  Receive Date: 20190201
  Receipt Date: 20190201
  Transmission Date: 20190417
  Serious: Yes (Hospitalization)
  Sender: FDA-Public Use
  Company Number: FR-ACCORD-104763

PATIENT
  Age: 56 Year
  Sex: Female
  Weight: 73 kg

DRUGS (13)
  1. ETOPOSIDE MYLAN [Suspect]
     Active Substance: ETOPOSIDE
     Indication: BRONCHIAL CARCINOMA
     Route: 042
     Dates: start: 20180705, end: 20180706
  2. SODIUM BICARBONATE. [Concomitant]
     Active Substance: SODIUM BICARBONATE
  3. PARACETAMOL [Concomitant]
     Active Substance: ACETAMINOPHEN
  4. BISOCE [Concomitant]
     Active Substance: BISOPROLOL
     Dosage: 2.5 MG FILM-COATED TABLETS
  5. GAVISCON [Concomitant]
     Active Substance: ALUMINUM HYDROXIDE\MAGNESIUM CARBONATE
  6. RACECADOTRIL [Concomitant]
     Active Substance: RACECADOTRIL
  7. CARBOPLATIN ACCORD [Suspect]
     Active Substance: CARBOPLATIN
     Indication: BRONCHIAL CARCINOMA
     Route: 042
     Dates: start: 20180705, end: 20180705
  8. IMOVANE [Concomitant]
     Active Substance: ZOPICLONE
  9. PANTOPRAZOLE [Concomitant]
     Active Substance: PANTOPRAZOLE
  10. SMECTA [Concomitant]
     Active Substance: MONTMORILLONITE
  11. APROVEL [Concomitant]
     Active Substance: IRBESARTAN
  12. LEVOTHYROXINE. [Concomitant]
     Active Substance: LEVOTHYROXINE
  13. PRIMPERAN [Concomitant]
     Active Substance: METOCLOPRAMIDE HYDROCHLORIDE

REACTIONS (2)
  - Epistaxis [Recovered/Resolved]
  - Febrile bone marrow aplasia [Recovering/Resolving]

NARRATIVE: CASE EVENT DATE: 20180716
